FAERS Safety Report 9095655 (Version 1)
Quarter: 2013Q1

REPORT INFORMATION
  Report Type: Spontaneous
  Country: CA (occurrence: CA)
  Receive Date: 20130220
  Receipt Date: 20130220
  Transmission Date: 20140127
  Serious: Yes (Other)
  Sender: FDA-Public Use
  Company Number: CA-AMGEN-CANSP2013010672

PATIENT
  Age: 75 Year
  Sex: Female

DRUGS (5)
  1. NEUPOGEN [Suspect]
     Indication: PRODUCT USED FOR UNKNOWN INDICATION
     Dosage: UNK
  2. CHEMOTHERAPEUTICS [Concomitant]
     Dosage: UNK
  3. PREDNISONE [Concomitant]
     Dosage: UNK, FOR 4 DAYS FOLLOWING EACH CHEMO TREATMENT
  4. THYROID THERAPY [Concomitant]
     Dosage: UNK
  5. VITAMINS NOS [Concomitant]
     Dosage: UNK

REACTIONS (4)
  - Hallucination [Unknown]
  - Gait disturbance [Unknown]
  - Dizziness [Unknown]
  - Feeling abnormal [Unknown]
